FAERS Safety Report 9022111 (Version 2)
Quarter: 2013Q1

REPORT INFORMATION
  Report Type: Spontaneous
  Country: CA (occurrence: CA)
  Receive Date: 20130118
  Receipt Date: 20130226
  Transmission Date: 20140127
  Serious: Yes (Hospitalization)
  Sender: FDA-Public Use
  Company Number: CA-AMGEN-CANSP2013001728

PATIENT
  Age: 52 Year
  Sex: Female

DRUGS (1)
  1. SENSIPAR [Suspect]
     Indication: RENAL IMPAIRMENT
     Dosage: UNK
     Dates: start: 20121123

REACTIONS (4)
  - Renal failure [Recovered/Resolved]
  - Medical device complication [Unknown]
  - Post procedural swelling [Not Recovered/Not Resolved]
  - Scab [Not Recovered/Not Resolved]
